FAERS Safety Report 10300427 (Version 10)
Quarter: 2017Q2

REPORT INFORMATION
  Report Type: Report from Study
  Country: JP (occurrence: JP)
  Receive Date: 20140713
  Receipt Date: 20170628
  Transmission Date: 20170829
  Serious: Yes (Hospitalization, Other)
  Sender: FDA-Public Use
  Company Number: PHHY2011JP20801

PATIENT
  Age: 56 Year
  Sex: Male

DRUGS (58)
  1. CERTICAN [Suspect]
     Active Substance: EVEROLIMUS
     Dosage: 1.5 MG, UNK
     Route: 048
     Dates: start: 20141114, end: 20150304
  2. CERTICAN [Suspect]
     Active Substance: EVEROLIMUS
     Dosage: 1.25 MG, UNK
     Route: 048
     Dates: start: 20150305, end: 20150401
  3. CERTICAN [Suspect]
     Active Substance: EVEROLIMUS
     Dosage: 1.25 MG, UNK
     Route: 048
     Dates: start: 20151029, end: 20160208
  4. NEORAL [Suspect]
     Active Substance: CYCLOSPORINE
     Indication: HEART TRANSPLANT
     Dosage: 105 MG, QD
     Route: 048
     Dates: start: 20091030, end: 20100126
  5. BLOPRESS [Concomitant]
     Active Substance: CANDESARTAN CILEXETIL
     Dosage: 4 MG, UNK
     Route: 048
     Dates: end: 20100727
  6. AMLODIPINE [Concomitant]
     Active Substance: AMLODIPINE BESYLATE
     Indication: HYPERTENSION
     Dosage: 2.5 MG, UNK
     Route: 048
  7. ZYLORIC [Concomitant]
     Active Substance: ALLOPURINOL
     Indication: PROPHYLAXIS
     Dosage: 100 MG, UNK
     Route: 048
  8. ABILIFY [Concomitant]
     Active Substance: ARIPIPRAZOLE
     Indication: PRODUCT USED FOR UNKNOWN INDICATION
     Dosage: UNK
     Route: 065
  9. CERTICAN [Suspect]
     Active Substance: EVEROLIMUS
     Dosage: 0.75 MG, QD
     Route: 048
     Dates: start: 20100201, end: 20100330
  10. CERTICAN [Suspect]
     Active Substance: EVEROLIMUS
     Dosage: 1.5 MG, QD
     Route: 048
     Dates: start: 20110316, end: 20110316
  11. CERTICAN [Suspect]
     Active Substance: EVEROLIMUS
     Dosage: 1.25 MG, UNK
     Route: 048
     Dates: start: 20140628, end: 20141113
  12. CERTICAN [Suspect]
     Active Substance: EVEROLIMUS
     Dosage: 1.5 MG, UNK
     Route: 048
     Dates: start: 20150402, end: 20150507
  13. CERTICAN [Suspect]
     Active Substance: EVEROLIMUS
     Dosage: 1.75 MG, UNK
     Route: 048
     Dates: start: 20150508, end: 20150702
  14. NEORAL [Suspect]
     Active Substance: CYCLOSPORINE
     Dosage: 95 MG, QD
     Route: 048
     Dates: start: 20100130, end: 20100131
  15. NEORAL [Suspect]
     Active Substance: CYCLOSPORINE
     Dosage: 50 MG, QD
     Route: 048
     Dates: start: 20100623, end: 20100707
  16. NEORAL [Suspect]
     Active Substance: CYCLOSPORINE
     Dosage: 55 MG, QD
     Route: 048
     Dates: start: 20100723, end: 20100902
  17. NEORAL [Suspect]
     Active Substance: CYCLOSPORINE
     Dosage: 50 MG, QD
     Route: 048
     Dates: start: 20100903, end: 20100915
  18. NEORAL [Suspect]
     Active Substance: CYCLOSPORINE
     Dosage: 30 MG, QD
     Route: 048
     Dates: start: 20101203, end: 20110607
  19. PROGRAF [Suspect]
     Active Substance: TACROLIMUS\TACROLIMUS ANHYDROUS
     Indication: PRODUCT USED FOR UNKNOWN INDICATION
     Dosage: UNK
     Route: 065
  20. FERROMIA [Concomitant]
     Active Substance: FERROUS CITRATE
     Indication: PROPHYLAXIS
     Dosage: 50 MG, UNK
     Route: 048
     Dates: start: 20130822, end: 20140206
  21. MAINTATE [Concomitant]
     Active Substance: BISOPROLOL FUMARATE
     Indication: HYPERTENSION
     Dosage: 2.5 MG, UNK
     Route: 048
  22. CERTICAN [Suspect]
     Active Substance: EVEROLIMUS
     Dosage: 1.25 MG, QD
     Route: 048
     Dates: start: 20100125, end: 20100125
  23. CERTICAN [Suspect]
     Active Substance: EVEROLIMUS
     Dosage: 1.25 MG, QD
     Route: 048
     Dates: start: 20130824, end: 20140206
  24. CERTICAN [Suspect]
     Active Substance: EVEROLIMUS
     Dosage: 2 MG, UNK
     Route: 048
     Dates: start: 20150703, end: 20151009
  25. NEORAL [Suspect]
     Active Substance: CYCLOSPORINE
     Dosage: 60 MG, QD
     Route: 048
     Dates: start: 20100708, end: 20100722
  26. CELLCEPT [Concomitant]
     Active Substance: MYCOPHENOLATE MOFETIL\MYCOPHENOLATE MOFETIL HYDROCHLORIDE
     Indication: HEART TRANSPLANT
     Dosage: 2500 MG, UNK
     Route: 048
     Dates: end: 20100120
  27. HERBESSOR R [Concomitant]
     Indication: PRODUCT USED FOR UNKNOWN INDICATION
     Dosage: 100 MG, UNK
     Route: 048
  28. SEROQUEL [Concomitant]
     Active Substance: QUETIAPINE FUMARATE
     Indication: PRODUCT USED FOR UNKNOWN INDICATION
     Dosage: UNK
     Route: 065
  29. CERTICAN [Suspect]
     Active Substance: EVEROLIMUS
     Indication: HEART TRANSPLANT
     Dosage: 1.5 MG, QD
     Route: 048
     Dates: start: 20100121, end: 20100124
  30. CERTICAN [Suspect]
     Active Substance: EVEROLIMUS
     Dosage: 1.75 MG, UNK
     Route: 048
     Dates: start: 20151010, end: 20151014
  31. PREDONINE [Suspect]
     Active Substance: PREDNISOLONE
     Dosage: 2.5 MG, UNK
     Route: 048
     Dates: start: 20150831
  32. CERTICAN [Suspect]
     Active Substance: EVEROLIMUS
     Dosage: 1 MG, QD
     Route: 048
     Dates: start: 20100126, end: 20100131
  33. CERTICAN [Suspect]
     Active Substance: EVEROLIMUS
     Dosage: 1 MG, QD
     Route: 048
     Dates: start: 20100331, end: 20101117
  34. CERTICAN [Suspect]
     Active Substance: EVEROLIMUS
     Dosage: 1.25 MG, QD
     Route: 048
     Dates: start: 20101118, end: 20110315
  35. CERTICAN [Suspect]
     Active Substance: EVEROLIMUS
     Dosage: 0.75 MG, QD
     Route: 048
     Dates: start: 20110317
  36. NEORAL [Suspect]
     Active Substance: CYCLOSPORINE
     Dosage: 90 MG, QD
     Route: 048
     Dates: start: 20100201, end: 20100304
  37. NEORAL [Suspect]
     Active Substance: CYCLOSPORINE
     Dosage: 70 MG, QD
     Route: 048
     Dates: start: 20100426, end: 20100622
  38. PREDONINE [Suspect]
     Active Substance: PREDNISOLONE
     Indication: PRODUCT USED FOR UNKNOWN INDICATION
     Dosage: 5 MG, UNK
     Route: 048
     Dates: start: 20141114, end: 20150830
  39. MEVALOTIN [Concomitant]
     Active Substance: PRAVASTATIN SODIUM
     Indication: HYPERLIPIDAEMIA
     Dosage: 20 MG, UNK
     Route: 048
  40. BLOPRESS [Concomitant]
     Active Substance: CANDESARTAN CILEXETIL
     Indication: HYPERTENSION
     Dosage: 4 MG, UNK
     Route: 048
     Dates: start: 19710227
  41. NEORAL [Suspect]
     Active Substance: CYCLOSPORINE
     Dosage: 80 MG, QD
     Route: 048
     Dates: start: 20100305, end: 20100425
  42. NEORAL [Suspect]
     Active Substance: CYCLOSPORINE
     Dosage: 40 MG, QD
     Route: 048
     Dates: start: 20100916, end: 20101102
  43. NEORAL [Suspect]
     Active Substance: CYCLOSPORINE
     Dosage: 20 MG, QD
     Route: 048
     Dates: start: 20110608, end: 20130604
  44. NEORAL [Suspect]
     Active Substance: CYCLOSPORINE
     Dosage: 10 MG, QD
     Route: 048
     Dates: start: 20130605, end: 20141113
  45. LASIX [Concomitant]
     Active Substance: FUROSEMIDE
     Indication: HYPERTENSION
     Dosage: 10 MG, UNK
     Route: 048
  46. BUFFERIN [Concomitant]
     Active Substance: ASPIRIN
     Indication: PROPHYLAXIS
     Dosage: 81 MG, UNK
     Route: 048
  47. CERTICAN [Suspect]
     Active Substance: EVEROLIMUS
     Dosage: 1.25 MG, QD
     Route: 048
     Dates: start: 20110318, end: 20110914
  48. CERTICAN [Suspect]
     Active Substance: EVEROLIMUS
     Dosage: 1 MG, QD
     Route: 048
     Dates: start: 20140207, end: 20140627
  49. MEVALOTIN [Concomitant]
     Active Substance: PRAVASTATIN SODIUM
     Dosage: 20 MG, UNK
     Route: 048
     Dates: start: 20110329, end: 20130818
  50. MEVALOTIN [Concomitant]
     Active Substance: PRAVASTATIN SODIUM
     Dosage: 10 MG, UNK
     Route: 048
     Dates: start: 20130819
  51. BLOPRESS [Concomitant]
     Active Substance: CANDESARTAN CILEXETIL
     Dosage: 4 MG, UNK
     Route: 048
     Dates: start: 20100810
  52. TOLEDOMIN [Concomitant]
     Active Substance: MILNACIPRAN HYDROCHLORIDE
     Indication: PRODUCT USED FOR UNKNOWN INDICATION
     Dosage: UNK
     Route: 065
  53. CERTICAN [Suspect]
     Active Substance: EVEROLIMUS
     Dosage: 1 MG, QD
     Route: 048
     Dates: start: 20110915, end: 20130823
  54. CERTICAN [Suspect]
     Active Substance: EVEROLIMUS
     Dosage: 1.5 MG, UNK
     Route: 048
     Dates: start: 20151015, end: 20151028
  55. NEORAL [Suspect]
     Active Substance: CYCLOSPORINE
     Dosage: 100 MG, QD
     Route: 048
     Dates: start: 20100127, end: 20100129
  56. MEVALOTIN [Concomitant]
     Active Substance: PRAVASTATIN SODIUM
     Dosage: 10 MG, UNK
     Route: 048
     Dates: start: 20101228
  57. OMEPRAL [Concomitant]
     Active Substance: OMEPRAZOLE
     Indication: PRODUCT USED FOR UNKNOWN INDICATION
     Dosage: 20 MG, UNK
     Route: 048
  58. BAKTAR [Concomitant]
     Active Substance: SULFAMETHOXAZOLE\TRIMETHOPRIM
     Indication: PRODUCT USED FOR UNKNOWN INDICATION
     Dosage: 2 DF, MONDAY AND THURSDAY
     Route: 048

REACTIONS (14)
  - Oral herpes [Recovering/Resolving]
  - Diabetes mellitus [Recovering/Resolving]
  - Glucose tolerance impaired [Not Recovered/Not Resolved]
  - Upper respiratory tract inflammation [Recovered/Resolved]
  - Renal impairment [Recovering/Resolving]
  - Epstein-Barr viraemia [Not Recovered/Not Resolved]
  - White blood cell count decreased [Recovering/Resolving]
  - Iron deficiency anaemia [Recovering/Resolving]
  - Pneumonia [Recovered/Resolved]
  - Lower limb fracture [Recovering/Resolving]
  - Lymphoedema [Not Recovered/Not Resolved]
  - Stomatitis [Recovering/Resolving]
  - Oedema peripheral [Not Recovered/Not Resolved]
  - Fall [Recovered/Resolved]

NARRATIVE: CASE EVENT DATE: 20100125
